FAERS Safety Report 4424219-9 (Version None)
Quarter: 2004Q3

REPORT INFORMATION
  Report Type: 
  Country: None (occurrence: None)
  Receive Date: 20040715
  Receipt Date: 20040528
  Transmission Date: 20050211
  Serious: Yes (Hospitalization)
  Sender: FDA-Public Use
  Company Number: 2004213876US

PATIENT
  Age: 72 Year
  Sex: Male
  Weight: 77.1 kg

DRUGS (5)
  1. CELEBREX [Suspect]
     Indication: PAIN
     Dosage: 200 MG, QD,
     Dates: start: 20031201, end: 20031201
  2. ASPIRIN [Concomitant]
  3. HYTRIN [Concomitant]
  4. MULTIVITAMIN [Concomitant]
  5. IBUPROFEN [Concomitant]

REACTIONS (1)
  - CELLULITIS [None]
